FAERS Safety Report 7707458-0 (Version None)
Quarter: 2011Q3

REPORT INFORMATION
  Report Type: 
  Country: None (occurrence: None)
  Receive Date: 20110824
  Receipt Date: 20110823
  Transmission Date: 20111222
  Serious: Yes (Other)
  Sender: FDA-Public Use
  Company Number: IL-ABBOTT-11P-020-0846585-00

PATIENT
  Age: 58 Year
  Sex: Male
  Weight: 100 kg

DRUGS (5)
  1. ETOPAN [Concomitant]
     Indication: RHEUMATOID ARTHRITIS
     Route: 048
  2. ALLORIL [Concomitant]
     Indication: PRODUCT USED FOR UNKNOWN INDICATION
  3. TRAMADEX [Concomitant]
     Indication: RHEUMATOID ARTHRITIS
     Route: 048
  4. OXYCONTIN [Concomitant]
     Indication: RHEUMATOID ARTHRITIS
     Dosage: SOS
  5. HUMIRA [Suspect]
     Indication: RHEUMATOID ARTHRITIS
     Route: 058
     Dates: start: 20110808

REACTIONS (2)
  - VIITH NERVE PARALYSIS [None]
  - VISION BLURRED [None]
